FAERS Safety Report 8440550-4 (Version None)
Quarter: 2012Q2

REPORT INFORMATION
  Report Type: 
  Country: None (occurrence: None)
  Receive Date: 20120615
  Receipt Date: 20120607
  Transmission Date: 20120825
  Serious: Yes (Hospitalization)
  Sender: FDA-Public Use
  Company Number: US-BRISTOL-MYERS SQUIBB COMPANY-16671869

PATIENT
  Age: 61 Year
  Sex: Male
  Weight: 65 kg

DRUGS (3)
  1. ERBITUX [Suspect]
     Indication: OESOPHAGEAL ADENOCARCINOMA
     Dosage: NO OF COURSE: 1; LAST ADMIN ON 21MAY12; FIRST 5CYC (D1,8,15,22,29); LAST CYC D36 WAS HELD.
     Dates: start: 20120423
  2. TAXOL [Suspect]
     Indication: OESOPHAGEAL ADENOCARCINOMA
     Dosage: NO OF COURSE: 1; LAST ADMIN ON 21MAY12; FIRST 5CYC (D1,8,15,22,29); LAST CYC D36 WAS HELD.
     Dates: start: 20120423
  3. CISPLATIN [Suspect]
     Indication: OESOPHAGEAL ADENOCARCINOMA
     Dosage: NO OF COURSE: 1; LAST ADMIN ON 21MAY12; FIRST 5CYC (D1,8,15,22,29); LAST CYC D36 WAS HELD.
     Dates: start: 20120423

REACTIONS (5)
  - NAUSEA [None]
  - DYSPHAGIA [None]
  - VOMITING [None]
  - STOMATITIS [None]
  - DEHYDRATION [None]
